FAERS Safety Report 14992951 (Version 1)
Quarter: 2018Q2

REPORT INFORMATION
  Report Type: Other
  Country: NL (occurrence: NL)
  Receive Date: 20180610
  Receipt Date: 20180610
  Transmission Date: 20180711
  Serious: Yes (Other)
  Sender: FDA-Public Use
  Company Number: NL-DEXPHARM-20180377

PATIENT

DRUGS (2)
  1. CHLORHEXIDINE 0.5% IN 70% ALCOHOL [Suspect]
     Active Substance: ALCOHOL\CHLORHEXIDINE GLUCONATE
  2. CHLORHEXIDINE 0.2 % IN ACETATE SOLUTION [Suspect]
     Active Substance: CHLORHEXIDINE ACETATE

REACTIONS (1)
  - Skin lesion [Recovered/Resolved]
